FAERS Safety Report 11086236 (Version 2)
Quarter: 2015Q2

REPORT INFORMATION
  Report Type: Spontaneous
  Country: US (occurrence: US)
  Receive Date: 20150503
  Receipt Date: 20150525
  Transmission Date: 20150821
  Serious: No
  Sender: FDA-Public Use
  Company Number: US-JNJFOC-20150406267

PATIENT
  Sex: Female
  Weight: 90.72 kg

DRUGS (10)
  1. KEPPRA [Concomitant]
     Active Substance: LEVETIRACETAM
     Indication: CONVULSION PROPHYLAXIS
     Route: 065
  2. CLONAZEPAM. [Concomitant]
     Active Substance: CLONAZEPAM
     Indication: ANXIETY
     Dosage: 2-4 MG
     Route: 048
  3. ALLEGRA [Concomitant]
     Active Substance: FEXOFENADINE HYDROCHLORIDE
     Indication: MULTIPLE ALLERGIES
     Route: 048
  4. PULMICORT TURBUHALER [Concomitant]
     Active Substance: BUDESONIDE
     Indication: ASTHMA
     Route: 048
  5. MYSOLINE [Suspect]
     Active Substance: PRIMIDONE
     Indication: MYOCLONUS
     Route: 065
  6. MYSOLINE [Suspect]
     Active Substance: PRIMIDONE
     Indication: MYOCLONUS
     Route: 065
  7. PROAIR HFA [Concomitant]
     Active Substance: ALBUTEROL SULFATE
     Indication: ASTHMA
     Route: 048
  8. XARELTO [Suspect]
     Active Substance: RIVAROXABAN
     Indication: ANTIPHOSPHOLIPID SYNDROME
     Route: 048
  9. POLYETHYLENE GLYCOL [Concomitant]
     Active Substance: POLYETHYLENE GLYCOLS
     Route: 048
  10. VITAMIN D [Concomitant]
     Active Substance: CHOLECALCIFEROL
     Indication: VITAMIN SUPPLEMENTATION
     Route: 048

REACTIONS (3)
  - Neuropathy peripheral [Not Recovered/Not Resolved]
  - Adverse event [Unknown]
  - Product use issue [Unknown]
